FAERS Safety Report 4293179-6 (Version None)
Quarter: 2004Q1

REPORT INFORMATION
  Report Type: 
  Country: None (occurrence: None)
  Receive Date: 20040210
  Receipt Date: 20040204
  Transmission Date: 20041129
  Serious: Yes (Death)
  Sender: FDA-Public Use
  Company Number: CA-JNJFOC-20040200812

PATIENT
  Age: 26 Year
  Sex: Male

DRUGS (9)
  1. DURAGESIC [Suspect]
     Indication: PAIN
     Dosage: 75 UG/HR, 1 IN 48 HOUR, TRANSDERMAL
     Route: 062
     Dates: start: 20030616, end: 20040101
  2. ZANTAC [Concomitant]
  3. ZANAX (ALPRAZOLAM) [Concomitant]
  4. CODEINE (CODEINE) [Concomitant]
  5. MORPHINE SULFATE [Concomitant]
  6. NIFEDIPINE [Concomitant]
  7. PROZAC [Concomitant]
  8. RITALIN [Concomitant]
  9. SEROQUEL [Concomitant]

REACTIONS (4)
  - ASPIRATION [None]
  - COMPLETED SUICIDE [None]
  - INJURY ASPHYXIATION [None]
  - INTENTIONAL OVERDOSE [None]
